FAERS Safety Report 16403876 (Version 1)
Quarter: 2019Q3

REPORT INFORMATION
  Report Type: Spontaneous
  Country: US (occurrence: US)
  Receive Date: 20190606
  Receipt Date: 20190606
  Transmission Date: 20191004
  Serious: Yes (Other)
  Sender: FDA-Public Use
  Company Number: None

PATIENT
  Age: 52 Year
  Sex: Female
  Weight: 90.45 kg

DRUGS (4)
  1. IBROPHEN [Concomitant]
  2. AMOXICILLIN. [Concomitant]
     Active Substance: AMOXICILLIN
  3. PENNICILLIN 500MG [Suspect]
     Active Substance: PENICILLIN
     Indication: TOOTH INFECTION
     Dosage: ?          QUANTITY:30 TABLET(S);?
     Route: 048
     Dates: start: 20190520, end: 20190531
  4. N/A [Concomitant]
     Active Substance: UNSPECIFIED INGREDIENT

REACTIONS (3)
  - Pruritus generalised [None]
  - Rash [None]
  - Swelling [None]

NARRATIVE: CASE EVENT DATE: 20190523
